FAERS Safety Report 9521620 (Version 1)
Quarter: 2013Q3

REPORT INFORMATION
  Report Type: Spontaneous
  Country: JP (occurrence: JP)
  Receive Date: 20130913
  Receipt Date: 20130913
  Transmission Date: 20140515
  Serious: Yes (Other)
  Sender: FDA-Public Use
  Company Number: JP-ASTELLAS-2013US009621

PATIENT
  Age: 72 Year
  Sex: Male

DRUGS (10)
  1. TARCEVA [Suspect]
     Indication: LUNG ADENOCARCINOMA
     Dosage: 150 MG, UID/QD
     Route: 048
     Dates: start: 20130718, end: 20130821
  2. CEFTRIAXONE [Suspect]
     Indication: PNEUMONIA BACTERIAL
     Dosage: 2 G, UID/QD
     Route: 041
     Dates: start: 20130817, end: 20130819
  3. LAC-B [Concomitant]
     Indication: ENTEROCOLITIS
     Dosage: 3 G, UID/QD
     Route: 048
     Dates: start: 20120130
  4. TAMSULOSIN [Concomitant]
     Indication: BENIGN PROSTATIC HYPERPLASIA
     Dosage: 0.2 MG, UID/QD
     Route: 048
     Dates: start: 20120326
  5. GLYCERIN W/FRUCTOSE [Concomitant]
     Indication: PRODUCT USED FOR UNKNOWN INDICATION
     Dosage: UNK
     Route: 065
  6. AMPICILLIN SODIUM W/SULBACTAM SODIUM [Concomitant]
     Indication: PNEUMONIA BACTERIAL
     Dosage: 6 G, UID/QD
     Route: 041
     Dates: start: 20130726, end: 20130802
  7. DEXART [Concomitant]
     Indication: LUNG ADENOCARCINOMA
     Dosage: 6.6 MG, UID/QD
     Route: 041
     Dates: start: 20130726, end: 20130728
  8. DEXART [Concomitant]
     Dosage: 3.3 MG, UID/QD
     Route: 041
     Dates: start: 20130729, end: 20130807
  9. NIZORAL [Concomitant]
     Indication: SKIN CANDIDA
     Dosage: UNK
     Route: 062
     Dates: start: 20130806
  10. CALONAL [Concomitant]
     Indication: PRODUCT USED FOR UNKNOWN INDICATION
     Dosage: 400 MG, TID
     Route: 048
     Dates: start: 20130813

REACTIONS (2)
  - Neutrophil count decreased [Recovered/Resolved]
  - Rash [Not Recovered/Not Resolved]
